FAERS Safety Report 4829932-7 (Version None)
Quarter: 2005Q4

REPORT INFORMATION
  Report Type: 
  Country: None (occurrence: None)
  Receive Date: 20051115
  Receipt Date: 20051103
  Transmission Date: 20060501
  Serious: Yes (Other)
  Sender: FDA-Public Use
  Company Number: 2005RR-01072

PATIENT
  Age: 78 Year
  Sex: Female
  Weight: 60 kg

DRUGS (3)
  1. IBUPROFEN TABLETS [Suspect]
     Indication: OSTEOARTHRITIS
     Dosage: 200 MG, TID, ORAL
     Route: 048
     Dates: start: 20051008, end: 20051011
  2. DIHYDROCODEINE (DIHYDORCODEINE) UNKNOWN [Suspect]
     Indication: OSTEOARTHRITIS
     Dosage: ORAL
     Route: 048
     Dates: start: 20051006, end: 20051001
  3. DISODIUM PAMIDRONATE (PAMIDRONIC ACID) [Suspect]
     Indication: OSTEOARTHRITIS
     Dosage: INTRAVENOUS
     Route: 042
     Dates: start: 20050927, end: 20050927

REACTIONS (1)
  - ERYTHEMA MULTIFORME [None]
